FAERS Safety Report 6091456-X (Version None)
Quarter: 2009Q1

REPORT INFORMATION
  Report Type: 
  Country: None (occurrence: None)
  Receive Date: 20090219
  Receipt Date: 20090219
  Transmission Date: 20090719
  Serious: Yes (Other)
  Sender: FDA-Public Use
  Company Number: None

PATIENT
  Sex: Female

DRUGS (4)
  1. FLUOXETINE [Suspect]
     Indication: MAJOR DEPRESSION
     Dosage: 60 MG DAILY PO
     Route: 048
     Dates: start: 20070801, end: 20080101
  2. WELLBUTRIN [Concomitant]
  3. REMERON [Concomitant]
  4. KLONOPIN [Concomitant]

REACTIONS (2)
  - DEPRESSED MOOD [None]
  - FEAR [None]
